FAERS Safety Report 9634977 (Version 1)
Quarter: 2013Q4

REPORT INFORMATION
  Report Type: Spontaneous
  Country: US (occurrence: US)
  Receive Date: 20131021
  Receipt Date: 20131021
  Transmission Date: 20140711
  Serious: No
  Sender: FDA-Public Use
  Company Number: US-BAYER-2013-126742

PATIENT
  Sex: 0

DRUGS (6)
  1. ALEVE CAPLET [Suspect]
     Indication: HEADACHE
  2. BAYER GENUINE ASPIRIN ORIGINAL STRENGTH [Suspect]
     Indication: HEADACHE
  3. TYLENOL [PARACETAMOL] [Suspect]
     Indication: HEADACHE
  4. IBUPROFEN [Suspect]
     Indication: HEADACHE
  5. ADVIL [Suspect]
     Indication: HEADACHE
  6. NAPROXEN [Suspect]
     Indication: HEADACHE

REACTIONS (1)
  - Drug ineffective [None]
